FAERS Safety Report 10164353 (Version 1)
Quarter: 2014Q2

REPORT INFORMATION
  Report Type: Spontaneous
  Country: US (occurrence: US)
  Receive Date: 20140510
  Receipt Date: 20140510
  Transmission Date: 20141212
  Serious: No
  Sender: FDA-Public Use
  Company Number: US-BRISTOL-MYERS SQUIBB COMPANY-20071387

PATIENT
  Age: 64 Year
  Sex: Male
  Weight: 89.79 kg

DRUGS (3)
  1. BYDUREON [Suspect]
     Indication: TYPE 2 DIABETES MELLITUS
     Dates: start: 20131217
  2. PLAVIX [Concomitant]
  3. PRADAXA [Concomitant]

REACTIONS (2)
  - Injection site mass [Unknown]
  - Injection site bruising [Recovered/Resolved]
